FAERS Safety Report 19469031 (Version 2)
Quarter: 2021Q3

REPORT INFORMATION
  Report Type: Spontaneous
  Country: US (occurrence: US)
  Receive Date: 20210628
  Receipt Date: 20210805
  Transmission Date: 20211014
  Serious: Yes (Other)
  Sender: FDA-Public Use
  Company Number: US-ASTRAZENECA-2021A503296

PATIENT
  Age: 27695 Day
  Sex: Male
  Weight: 85.3 kg

DRUGS (1)
  1. FASENRA [Suspect]
     Active Substance: BENRALIZUMAB
     Indication: ASTHMA
     Route: 058
     Dates: start: 20210315, end: 20210510

REACTIONS (5)
  - Malaise [Unknown]
  - Glycosylated haemoglobin abnormal [Not Recovered/Not Resolved]
  - Hepatic enzyme increased [Unknown]
  - Cholestasis [Recovering/Resolving]
  - Hepatotoxicity [Recovering/Resolving]

NARRATIVE: CASE EVENT DATE: 20210527
